FAERS Safety Report 9054355 (Version 1)
Quarter: 2013Q1

REPORT INFORMATION
  Report Type: Spontaneous
  Country: US (occurrence: US)
  Receive Date: 20130208
  Receipt Date: 20130208
  Transmission Date: 20140127
  Serious: Yes (Other)
  Sender: FDA-Public Use
  Company Number: US-AMGEN-USASP2013007201

PATIENT
  Age: 63 Year
  Sex: Female

DRUGS (7)
  1. XGEVA [Suspect]
     Indication: METASTASES TO BONE
     Dosage: UNK
     Dates: start: 201212
  2. XGEVA [Suspect]
     Indication: GASTRINOMA
  3. SUTENT [Concomitant]
  4. SANDOSTATIN [Concomitant]
  5. CALCIUM [Concomitant]
  6. IRON [Concomitant]
  7. PROTONIX [Concomitant]

REACTIONS (4)
  - Blood test abnormal [Recovering/Resolving]
  - Arthralgia [Unknown]
  - Gait disturbance [Unknown]
  - Insomnia [Unknown]
